FAERS Safety Report 18292757 (Version 1)
Quarter: 2020Q3

REPORT INFORMATION
  Report Type: Spontaneous
  Country: NO (occurrence: NO)
  Receive Date: 20200921
  Receipt Date: 20200921
  Transmission Date: 20201103
  Serious: Yes (Hospitalization)
  Sender: FDA-Public Use
  Company Number: NO-ELI_LILLY_AND_COMPANY-NO202009007341

PATIENT
  Age: 74 Year
  Sex: Female

DRUGS (5)
  1. FLUANXOL DEPOT [Suspect]
     Active Substance: FLUPENTIXOL DECANOATE
     Indication: SCHIZOPHRENIA
     Dosage: 105 MG, EVERY 3 WEEKS
     Route: 065
     Dates: start: 20200213
  2. SCHERIPROCT [CINCHOCAINE HYDROCHLORIDE;PREDNI [Concomitant]
     Indication: PRODUCT USED FOR UNKNOWN INDICATION
  3. ZYPADHERA [Suspect]
     Active Substance: OLANZAPINE PAMOATE
     Indication: SCHIZOPHRENIA
     Dosage: 406 MG, EVERY 3 WEEK
     Route: 030
     Dates: start: 20130113
  4. ZYPADHERA [Suspect]
     Active Substance: OLANZAPINE PAMOATE
     Indication: SCHIZOPHRENIA
     Dosage: 406 MG, EVERY 3 WEEK
     Route: 030
     Dates: start: 20130113
  5. ZYPADHERA [Suspect]
     Active Substance: OLANZAPINE PAMOATE
     Indication: SCHIZOPHRENIA
     Dosage: 406 MG, EVERY 3 WEEK
     Route: 030
     Dates: start: 20130113

REACTIONS (5)
  - Hyporesponsive to stimuli [Recovered/Resolved]
  - Dysarthria [Recovering/Resolving]
  - Inappropriate schedule of product administration [Unknown]
  - Tachycardia [Recovering/Resolving]
  - Somnolence [Recovered/Resolved]

NARRATIVE: CASE EVENT DATE: 20200826
